FAERS Safety Report 8926195 (Version 2)
Quarter: 2013Q1

REPORT INFORMATION
  Report Type: Spontaneous
  Country: NO (occurrence: NO)
  Receive Date: 20121126
  Receipt Date: 20130204
  Transmission Date: 20140127
  Serious: Yes (Death, Congenital Anomaly)
  Sender: FDA-Public Use
  Company Number: NO-BAYER-2012-121093

PATIENT
  Sex: Male

DRUGS (10)
  1. YASMIN [Suspect]
     Indication: CONTRACEPTION
     Dosage: UNK
     Route: 048
     Dates: start: 2012, end: 2012
  2. YASMIN [Interacting]
     Indication: CONTRACEPTION
     Dosage: UNK
     Route: 048
     Dates: start: 2012, end: 2012
  3. ABBOTICIN [Interacting]
     Indication: PNEUMONIA
     Dosage: UNK
     Dates: start: 2012, end: 2012
  4. ABBOTICIN [Interacting]
     Indication: PNEUMONIA
     Dosage: UNK
     Dates: start: 2012, end: 2012
  5. AMPICILLIN [Interacting]
     Indication: PNEUMONIA
     Dosage: UNK
     Dates: start: 2012, end: 2012
  6. AMPICILLIN [Interacting]
     Indication: PNEUMONIA
     Dosage: UNK
     Dates: start: 2012, end: 2012
  7. ERY-MAX [Interacting]
     Indication: PNEUMONIA
     Dosage: UNK
     Dates: start: 2012, end: 2012
  8. ERY-MAX [Interacting]
     Indication: PNEUMONIA
     Dosage: UNK
     Dates: start: 2012, end: 2012
  9. GENTAMICIN [Interacting]
     Indication: PNEUMONIA
     Dosage: UNK
     Dates: start: 2012, end: 2012
  10. GENTAMICIN [Interacting]
     Indication: PNEUMONIA
     Dosage: UNK
     Dates: start: 2012, end: 2012

REACTIONS (8)
  - Anencephaly [Fatal]
  - Spina bifida cystica [Fatal]
  - Exomphalos [Fatal]
  - Multiple congenital abnormalities [Fatal]
  - Congenital central nervous system anomaly [Fatal]
  - Cleft lip and palate [Not Recovered/Not Resolved]
  - Foetal exposure during pregnancy [Fatal]
  - Abortion induced [Fatal]
